FAERS Safety Report 4883411-X (Version None)
Quarter: 2006Q1

REPORT INFORMATION
  Report Type: 
  Country: None (occurrence: None)
  Receive Date: 20060113
  Receipt Date: 20060103
  Transmission Date: 20060701
  Serious: Yes (Death, Life-Threatening)
  Sender: FDA-Public Use
  Company Number: 2005169961

PATIENT
  Age: 71 Year
  Sex: Female

DRUGS (3)
  1. DIFLUCAN [Suspect]
     Indication: ILL-DEFINED DISORDER
     Dates: end: 20050101
  2. FUROSEMIDE [Suspect]
     Indication: ILL-DEFINED DISORDER
     Dosage: ORAL
     Route: 048
     Dates: start: 20050812, end: 20050831
  3. OMEPRAZOLE [Suspect]
     Indication: ILL-DEFINED DISORDER
     Dosage: INTRAVENOUS
     Route: 042
     Dates: end: 20050101

REACTIONS (5)
  - ENDOCARDITIS STAPHYLOCOCCAL [None]
  - LUNG INFECTION [None]
  - PANCYTOPENIA [None]
  - RESPIRATORY DISTRESS [None]
  - SEPTIC SHOCK [None]
